FAERS Safety Report 7287158-4 (Version None)
Quarter: 2011Q1

REPORT INFORMATION
  Report Type: 
  Country: None (occurrence: None)
  Receive Date: 20110211
  Receipt Date: 20110201
  Transmission Date: 20110831
  Serious: Yes (Other)
  Sender: FDA-Public Use
  Company Number: US-RB-019954-11

PATIENT
  Age: 5 Year
  Sex: Female

DRUGS (1)
  1. DELSYM [Suspect]
     Indication: PRODUCT USED FOR UNKNOWN INDICATION
     Dosage: ON 20-JAN-2011
     Route: 048

REACTIONS (4)
  - HALLUCINATION [None]
  - INSOMNIA [None]
  - VISUAL IMPAIRMENT [None]
  - ACCIDENTAL OVERDOSE [None]
